FAERS Safety Report 9761751 (Version 2)
Quarter: 2014Q1

REPORT INFORMATION
  Report Type: Spontaneous
  Country: US (occurrence: US)
  Receive Date: 20131216
  Receipt Date: 20140207
  Transmission Date: 20141002
  Serious: No
  Sender: FDA-Public Use
  Company Number: US-BIOGENIDEC-2013BI107285

PATIENT
  Age: 67 Year
  Sex: Female

DRUGS (17)
  1. TECFIDERA [Suspect]
     Indication: MULTIPLE SCLEROSIS
     Route: 048
     Dates: start: 20130503
  2. ALEVE [Concomitant]
  3. BENICAR [Concomitant]
  4. CALAMINE [Concomitant]
  5. CALCIUM [Concomitant]
  6. DHEA [Concomitant]
  7. LIPITOR [Concomitant]
  8. LIPOIC ACID [Concomitant]
  9. MAGNESIUM [Concomitant]
  10. MECLIZINE HCL [Concomitant]
  11. PREVAGEN [Concomitant]
  12. OMEGA 3 [Concomitant]
  13. TRAMADOL-ACETAMINOPHEN [Concomitant]
  14. VITAMIN B COMPLEX [Concomitant]
  15. VITAMIN D3 [Concomitant]
  16. IBUPROFEN [Concomitant]
  17. LIVALO [Concomitant]

REACTIONS (2)
  - Blood calcium increased [Unknown]
  - Rash [Unknown]
